FAERS Safety Report 5873750-8 (Version None)
Quarter: 2008Q3

REPORT INFORMATION
  Report Type: 
  Country: None (occurrence: None)
  Receive Date: 20080903
  Receipt Date: 20080903
  Transmission Date: 20090109
  Serious: Yes (Hospitalization)
  Sender: FDA-Public Use
  Company Number: None

PATIENT
  Age: 50 Year
  Sex: Male
  Weight: 114.31 kg

DRUGS (2)
  1. OXYCODONE HCL [Suspect]
     Indication: CANCER PAIN
     Dosage: 100 MG OTHER PO
     Route: 048
     Dates: start: 20080627, end: 20080822
  2. OXYCODONE HCL [Suspect]
     Indication: CANCER PAIN
     Dosage: 5 MG PRN PO
     Route: 048
     Dates: start: 20071212, end: 20080822

REACTIONS (8)
  - DEHYDRATION [None]
  - HYPOPHAGIA [None]
  - LETHARGY [None]
  - MENTAL STATUS CHANGES [None]
  - NAUSEA [None]
  - SEDATION [None]
  - UNRESPONSIVE TO STIMULI [None]
  - VOMITING [None]
